FAERS Safety Report 17079549 (Version 1)
Quarter: 2019Q4

REPORT INFORMATION
  Report Type: Spontaneous
  Country: US (occurrence: US)
  Receive Date: 20191029
  Receipt Date: 20191029
  Transmission Date: 20200122
  Serious: Yes (Hospitalization)
  Sender: FDA-Public Use
  Company Number: None

PATIENT
  Age: 43 Year
  Sex: Female

DRUGS (18)
  1. COPAXONE [Concomitant]
     Active Substance: GLATIRAMER ACETATE
  2. GLATIRAMER 40MG [Suspect]
     Active Substance: GLATIRAMER
     Indication: MULTIPLE SCLEROSIS
     Route: 058
     Dates: start: 20190912
  3. PREDNISONE. [Concomitant]
     Active Substance: PREDNISONE
  4. COLD MULT-SY TAB DAYTIME [Concomitant]
  5. ESCITALOPRAM [Concomitant]
     Active Substance: ESCITALOPRAM OXALATE
  6. SILENOR [Concomitant]
     Active Substance: DOXEPIN HYDROCHLORIDE
  7. FLUOXETINE [Concomitant]
     Active Substance: FLUOXETINE HYDROCHLORIDE
  8. CLINDAMYCIN. [Concomitant]
     Active Substance: CLINDAMYCIN
  9. VITAMIN D [Concomitant]
     Active Substance: VITAMIN D NOS
  10. ESZOPICLONE. [Concomitant]
     Active Substance: ESZOPICLONE
  11. ALPRAZOLAM. [Concomitant]
     Active Substance: ALPRAZOLAM
  12. GABAPENTIN. [Concomitant]
     Active Substance: GABAPENTIN
  13. ZOLPIDEM [Concomitant]
     Active Substance: ZOLPIDEM TARTRATE
  14. TUSSIONEX PENNKINETIC [Concomitant]
     Active Substance: CHLORPHENIRAMINE\HYDROCODONE
  15. CARISOPRODOL. [Concomitant]
     Active Substance: CARISOPRODOL
  16. LORAZEPAM. [Concomitant]
     Active Substance: LORAZEPAM
  17. AMPHETAMINE [Concomitant]
     Active Substance: AMPHETAMINE
  18. NORTRIPTYLIN [Concomitant]
     Active Substance: NORTRIPTYLINE

REACTIONS (3)
  - Fall [None]
  - Paraesthesia [None]
  - Transient ischaemic attack [None]

NARRATIVE: CASE EVENT DATE: 20191028
